FAERS Safety Report 9793008 (Version 1)
Quarter: 2014Q1

REPORT INFORMATION
  Report Type: Spontaneous
  Country: IT (occurrence: IT)
  Receive Date: 20140102
  Receipt Date: 20140102
  Transmission Date: 20141002
  Serious: Yes (Hospitalization)
  Sender: FDA-Public Use
  Company Number: IT-BAYER-2013-157165

PATIENT
  Age: 78 Year
  Sex: Male

DRUGS (5)
  1. CARDIOASPIRIN [Suspect]
     Indication: AORTIC VALVE CALCIFICATION
     Dosage: DAILY DOSE 100 MG
     Route: 048
     Dates: start: 20090101, end: 20131115
  2. BISOPROLOL [Concomitant]
     Dosage: DAILY DOSE 2.5 MG
     Route: 048
     Dates: start: 20130101, end: 20131116
  3. TORVAST [Concomitant]
     Dosage: DAILY DOSE 10 MG
     Route: 048
     Dates: start: 20130101, end: 20131115
  4. INIBACE PLUS [Concomitant]
     Dosage: DAILY DOSE 1 DF
     Route: 048
     Dates: start: 20130101, end: 20131116
  5. PANTORC [Concomitant]
     Dosage: DAILY DOSE 20 MG
     Route: 048
     Dates: start: 20130101, end: 20131116

REACTIONS (3)
  - Epistaxis [Recovering/Resolving]
  - Syncope [Recovering/Resolving]
  - Haematemesis [Recovering/Resolving]
